FAERS Safety Report 8289769-6 (Version None)
Quarter: 2012Q2

REPORT INFORMATION
  Report Type: 
  Country: None (occurrence: None)
  Receive Date: 20120417
  Receipt Date: 20120413
  Transmission Date: 20120825
  Serious: No
  Sender: FDA-Public Use
  Company Number: US-PFIZER INC-2012092833

PATIENT
  Sex: Female
  Weight: 68 kg

DRUGS (2)
  1. PERINDOPRIL ERBUMINE [Concomitant]
     Indication: BLOOD PRESSURE ABNORMAL
     Dosage: 6 MG, DAILY
  2. HALCION [Suspect]
     Indication: SLEEP DISORDER
     Dosage: UNK, AS NEEDED
     Route: 048

REACTIONS (2)
  - CIRCUMSTANCE OR INFORMATION CAPABLE OF LEADING TO MEDICATION ERROR [None]
  - DIZZINESS [None]
